FAERS Safety Report 6735432-X (Version None)
Quarter: 2010Q2

REPORT INFORMATION
  Report Type: 
  Country: None (occurrence: None)
  Receive Date: 20100521
  Receipt Date: 20100512
  Transmission Date: 20101027
  Serious: Yes (Other)
  Sender: FDA-Public Use
  Company Number: PHHY2010CA22141

PATIENT
  Sex: Female

DRUGS (5)
  1. CLOZARIL [Suspect]
     Indication: SCHIZOPHRENIA
     Dosage: 100 MG 1 CO A.M, HALF CO HS
     Route: 048
     Dates: start: 20001004, end: 20100410
  2. CHEMOTHERAPEUTICS NOS [Concomitant]
     Dosage: UNK
     Dates: start: 20100218
  3. TOPAMAX [Concomitant]
     Dosage: 25 MG 2 CO HS
  4. SENNOSIDES A+B [Concomitant]
     Dosage: 1-2 CO HS PRN
  5. PROCYCLIDINE HYDROCHLORIDE 2MG TAB [Concomitant]
     Dosage: 5MG 1 CO AM + 2 CO HS

REACTIONS (6)
  - ASTHENIA [None]
  - HYSTERECTOMY [None]
  - NEUTROPENIA [None]
  - UTERINE CANCER [None]
  - UTERINE POLYP [None]
  - WHITE BLOOD CELL COUNT DECREASED [None]
